FAERS Safety Report 13456958 (Version 2)
Quarter: 2017Q3

REPORT INFORMATION
  Report Type: Spontaneous
  Country: BE (occurrence: BE)
  Receive Date: 20170418
  Receipt Date: 20170817
  Transmission Date: 20171127
  Serious: Yes (Other)
  Sender: FDA-Public Use
  Company Number: BE-BRISTOL-MYERS SQUIBB COMPANY-BMS-2017-033277

PATIENT
  Age: 64 Year
  Sex: Male

DRUGS (1)
  1. DASATINIB [Suspect]
     Active Substance: DASATINIB
     Indication: CHRONIC MYELOID LEUKAEMIA
     Dosage: 100 MG, UNK
     Route: 048
     Dates: start: 200512, end: 20121119

REACTIONS (7)
  - Coronary artery stenosis [Recovered/Resolved]
  - Chronic kidney disease [Recovering/Resolving]
  - Atrial fibrillation [Unknown]
  - Hypertriglyceridaemia [Unknown]
  - Hypovitaminosis [Unknown]
  - Cardiovascular disorder [Unknown]
  - Hypercholesterolaemia [Unknown]

NARRATIVE: CASE EVENT DATE: 201211
